FAERS Safety Report 17490427 (Version 1)
Quarter: 2020Q1

REPORT INFORMATION
  Report Type: Spontaneous
  Country: US (occurrence: US)
  Receive Date: 20200303
  Receipt Date: 20200303
  Transmission Date: 20200409
  Serious: No
  Sender: FDA-Public Use
  Company Number: US-AKORN PHARMACEUTICALS-2019AKN01098

PATIENT
  Sex: Female

DRUGS (2)
  1. MYORISAN [Suspect]
     Active Substance: ISOTRETINOIN
     Indication: ACNE
     Dosage: 40 MG, 2X/DAY MORNING AND NIGHT
     Route: 048
     Dates: start: 201902, end: 201904
  2. UNSPECIFIED MEDICATIONS [Suspect]
     Active Substance: UNSPECIFIED INGREDIENT
     Dosage: UNK
     Dates: end: 201904

REACTIONS (3)
  - Gastrointestinal disorder [Unknown]
  - Food allergy [Unknown]
  - Lactose intolerance [Unknown]

NARRATIVE: CASE EVENT DATE: 201904
